FAERS Safety Report 8482738-2 (Version None)
Quarter: 2012Q3

REPORT INFORMATION
  Report Type: 
  Country: None (occurrence: None)
  Receive Date: 20120702
  Receipt Date: 20120626
  Transmission Date: 20120928
  Serious: Yes (Other)
  Sender: FDA-Public Use
  Company Number: US-TEVA-338335USA

PATIENT
  Sex: Female
  Weight: 48.98 kg

DRUGS (4)
  1. VERAMYST [Concomitant]
     Dosage: UNKNOWN
  2. IMITREX [Concomitant]
     Dosage: UNKNOWN
  3. CETIRIZINE HCL AND PSEUDOEPHEDRINE [Suspect]
     Indication: SEASONAL ALLERGY
     Dosage: 10 MILLIGRAM; UP TO 5 DAYS WEEKLY
     Route: 048
     Dates: start: 20120418
  4. CETIRIZINE HCL AND PSEUDOEPHEDRINE [Suspect]
     Dosage: UNKNOWN
     Route: 048
     Dates: start: 20120514, end: 20120514

REACTIONS (7)
  - SEDATION [None]
  - LOSS OF CONSCIOUSNESS [None]
  - SOMNOLENCE [None]
  - NAUSEA [None]
  - SLUGGISHNESS [None]
  - FATIGUE [None]
  - SYNCOPE [None]
